FAERS Safety Report 5642880-8 (Version None)
Quarter: 2008Q1

REPORT INFORMATION
  Report Type: 
  Country: None (occurrence: None)
  Receive Date: 20080228
  Receipt Date: 20080220
  Transmission Date: 20080703
  Serious: Yes (Other)
  Sender: FDA-Public Use
  Company Number: PHBS2008IT00933

PATIENT
  Age: 67 Year
  Sex: Male

DRUGS (3)
  1. ZOMETA [Suspect]
     Indication: OSTEOLYSIS
     Dosage: 4MG
     Route: 042
     Dates: start: 20080110, end: 20080110
  2. ZYPREXA [Concomitant]
     Dosage: 5 MG
     Route: 048
  3. TRANSTEC [Concomitant]
     Dosage: 10 MG
     Route: 062
     Dates: start: 20080102, end: 20080110

REACTIONS (2)
  - ANXIETY [None]
  - DYSPHORIA [None]
